FAERS Safety Report 25150673 (Version 1)
Quarter: 2025Q2

REPORT INFORMATION
  Report Type: Spontaneous
  Country: US (occurrence: US)
  Receive Date: 20250402
  Receipt Date: 20250402
  Transmission Date: 20250717
  Serious: Yes (Other)
  Sender: SANDOZ
  Company Number: US-TERSERA THERAPEUTICS LLC-2025TRS000309

PATIENT
  Age: 76 Year
  Sex: Female

DRUGS (2)
  1. XERMELO [Suspect]
     Active Substance: TELOTRISTAT ETHYL
     Indication: Carcinoid syndrome
     Dosage: 250 MG, TID
     Route: 048
     Dates: start: 20250213
  2. ZOFRAN [Suspect]
     Active Substance: ONDANSETRON HYDROCHLORIDE
     Indication: Product used for unknown indication
     Route: 065

REACTIONS (5)
  - Surgery [Unknown]
  - Oropharyngeal discomfort [Not Recovered/Not Resolved]
  - Nausea [Unknown]
  - Drug hypersensitivity [Unknown]
  - Intentional dose omission [Unknown]
